FAERS Safety Report 12898007 (Version 1)
Quarter: 2016Q4

REPORT INFORMATION
  Report Type: Spontaneous
  Country: FR (occurrence: FR)
  Receive Date: 20161031
  Receipt Date: 20161031
  Transmission Date: 20170207
  Serious: Yes (Death)
  Sender: FDA-Public Use
  Company Number: FR-GUERBET LLC-1059088

PATIENT
  Sex: Male

DRUGS (1)
  1. OPTIRAY [Suspect]
     Active Substance: IOVERSOL
     Indication: COMPUTERISED TOMOGRAM

REACTIONS (1)
  - Death [Fatal]
